FAERS Safety Report 20560963 (Version 4)
Quarter: 2022Q2

REPORT INFORMATION
  Report Type: Spontaneous
  Country: JP (occurrence: JP)
  Receive Date: 20220307
  Receipt Date: 20220421
  Transmission Date: 20220721
  Serious: Yes (Hospitalization, Other)
  Sender: FDA-Public Use
  Company Number: JP-MSD-2203JPN000023J

PATIENT
  Age: 40 Year
  Sex: Female
  Weight: 96 kg

DRUGS (10)
  1. KEYTRUDA [Suspect]
     Active Substance: PEMBROLIZUMAB
     Indication: Anal cancer stage IV
     Dosage: 200 MILLIGRAM, Q3W
     Route: 041
     Dates: start: 20210409, end: 20210409
  2. OXYCODONE HYDROCHLORIDE [Concomitant]
     Active Substance: OXYCODONE HYDROCHLORIDE
     Indication: Pain management
     Dosage: 20 MG MORNING, 40 MG EVENING
     Route: 048
  3. TAPENTADOL HYDROCHLORIDE [Concomitant]
     Active Substance: TAPENTADOL HYDROCHLORIDE
     Indication: Pain management
     Dosage: 200 MILLIGRAM, BID
     Route: 048
  4. ACETAMINOPHEN [Concomitant]
     Active Substance: ACETAMINOPHEN
     Indication: Pain management
     Dosage: 1000 MILLIGRAM, QID
     Route: 048
  5. VOLTAREN [Concomitant]
     Active Substance: DICLOFENAC SODIUM
     Indication: Pain management
     Dosage: 37.5 MILLIGRAM, BID
     Route: 048
  6. MIROGABALIN BESYLATE [Concomitant]
     Active Substance: MIROGABALIN BESYLATE
     Indication: Pain management
     Dosage: 15 MILLIGRAM, BID
     Route: 048
  7. SERTRALINE HYDROCHLORIDE [Concomitant]
     Active Substance: SERTRALINE HYDROCHLORIDE
     Indication: Depression
     Dosage: 50 MILLIGRAM, QD
     Route: 048
  8. QUETIAPINE FUMARATE [Concomitant]
     Active Substance: QUETIAPINE FUMARATE
     Indication: Depression
     Dosage: 25 MILLIGRAM, QD
     Route: 048
  9. AKINETON [Concomitant]
     Active Substance: BIPERIDEN HYDROCHLORIDE
     Indication: Depression
     Dosage: 0.5 MILLIGRAM, QID
     Route: 048
  10. PLAQUENIL [Concomitant]
     Active Substance: HYDROXYCHLOROQUINE SULFATE
     Indication: Immunosuppression
     Dosage: 200 MILLIGRAM, QD
     Route: 048
     Dates: start: 20171017

REACTIONS (13)
  - Depressed level of consciousness [Recovered/Resolved]
  - Respiratory failure [Unknown]
  - Cyanosis [Unknown]
  - Immune-mediated hepatic disorder [Recovering/Resolving]
  - Immune-mediated hepatic disorder [Recovering/Resolving]
  - Pyrexia [Recovered/Resolved]
  - Hypotension [Unknown]
  - Pneumonia [Recovered/Resolved]
  - Immune-mediated encephalitis [Recovered/Resolved]
  - Immune-mediated myocarditis [Recovered/Resolved]
  - Hypothyroidism [Recovering/Resolving]
  - Nephrolithiasis [Not Recovered/Not Resolved]
  - Proctalgia [Unknown]

NARRATIVE: CASE EVENT DATE: 20210412
